FAERS Safety Report 11234439 (Version 1)
Quarter: 2015Q3

REPORT INFORMATION
  Report Type: Spontaneous
  Country: US (occurrence: US)
  Receive Date: 20150702
  Receipt Date: 20150702
  Transmission Date: 20151125
  Serious: No
  Sender: FDA-Public Use
  Company Number: US-BAYER-2015-369021

PATIENT
  Age: 85 Year
  Sex: Male
  Weight: 63.49 kg

DRUGS (4)
  1. ALEVE PM [Suspect]
     Active Substance: DIPHENHYDRAMINE HYDROCHLORIDE\NAPROXEN SODIUM
     Indication: ARTHRALGIA
     Dosage: 2 DF, PRN
     Route: 048
     Dates: start: 201505
  2. DOXAZOSIN [Concomitant]
     Active Substance: DOXAZOSIN\DOXAZOSIN MESYLATE
     Dosage: UNK
  3. SIMVASTATIN. [Concomitant]
     Active Substance: SIMVASTATIN
     Dosage: UNK
  4. FELODIPINE. [Concomitant]
     Active Substance: FELODIPINE
     Dosage: UNK

REACTIONS (1)
  - Middle insomnia [Recovered/Resolved]

NARRATIVE: CASE EVENT DATE: 201505
